FAERS Safety Report 8173350-3 (Version None)
Quarter: 2012Q1

REPORT INFORMATION
  Report Type: 
  Country: None (occurrence: None)
  Receive Date: 20120104
  Receipt Date: 20111026
  Transmission Date: 20120608
  Serious: No
  Sender: FDA-Public Use
  Company Number: 2011HGS-002691

PATIENT
  Age: 56 Year
  Sex: Female
  Weight: 83.9154 kg

DRUGS (20)
  1. FIBERCON (POLYCARBOPHIL CALCIUM) (POLYCARBOPHIL CALCIUM) [Concomitant]
  2. OPTI-FRESH (TETRYZOLINE HYDROCHLORIDE)  (TETRYZOLINE HYDROCHLORIDE) [Concomitant]
  3. EPI-PEN (EPINEPHRINE) (EPINEPHRINE) [Concomitant]
  4. BENLYSTA [Suspect]
     Indication: SYSTEMIC LUPUS ERYTHEMATOSUS
     Dosage: 1 IN 28 D, INTRAVENOUS DRIP
     Route: 041
     Dates: start: 20110726
  5. PROPANOL (PROPRANOLOL) (PROPRANOLOL) [Concomitant]
  6. ADVAIR (SERETIDE MITE) (FLUTICASONE PROPIONATE, SALMETEROL XINAFOATE) [Concomitant]
  7. PROVENTIL (SALBUTAMOL SULFATE) (SALBUTAMOL SULFATE) [Concomitant]
  8. PREDNISONE [Concomitant]
  9. XOPENEX (LEVOSALBUTAMOL) (LEVOSALBUTAMOL) [Concomitant]
  10. COUMADIN [Concomitant]
  11. SINGULAIR (MONTELUKAST) (MONTELUKAST) [Concomitant]
  12. SINEMET (SINEMET) (LEVODOPA, CARBIDOPA) [Concomitant]
  13. LEVOTHYROXINE SODIUM [Concomitant]
  14. CLONAZEPAM [Concomitant]
  15. VITAMIN D (ERGOCALCIFEROL) (ERGOCALCIFEROL) [Concomitant]
  16. OVAR (BECLOMETASONE DIPROPIONATE) (BECLOMETASONE DIPROPIONATE) [Concomitant]
  17. PLAQUENIL (HYDROCXYCHLOROQUINE SULFATE) (HYDROXYCHLOROQUINE SULFATE) [Concomitant]
  18. LASIX (LASIX /SCH/) (FUROSEMIDE, FUROSEMIDE SODIUM) [Concomitant]
  19. DEXILANT (PROTON PUMP INHIBITORS) (NULL) [Concomitant]
  20. NITROGLYCERIN [Concomitant]

REACTIONS (17)
  - BALANCE DISORDER [None]
  - GASTROINTESTINAL PAIN [None]
  - CHEST PAIN [None]
  - DYSPNOEA [None]
  - FATIGUE [None]
  - TREMOR [None]
  - THYROXINE FREE DECREASED [None]
  - WHEEZING [None]
  - CONVULSION [None]
  - HEART RATE INCREASED [None]
  - BLOOD GLUCOSE FLUCTUATION [None]
  - HEAD TITUBATION [None]
  - DIARRHOEA [None]
  - BLOOD 25-HYDROXYCHOLECALCIFEROL DECREASED [None]
  - THYROXINE DECREASED [None]
  - DIZZINESS [None]
  - SOMNOLENCE [None]
